FAERS Safety Report 8030413-0 (Version None)
Quarter: 2012Q1

REPORT INFORMATION
  Report Type: 
  Country: None (occurrence: None)
  Receive Date: 20120109
  Receipt Date: 20120109
  Transmission Date: 20120608
  Serious: Yes (Other)
  Sender: FDA-Public Use
  Company Number: None

PATIENT
  Age: 63 Year
  Sex: Male
  Weight: 92.986 kg

DRUGS (2)
  1. CITALOPRAM HYDROBROMIDE [Suspect]
     Indication: POST-TRAUMATIC STRESS DISORDER
     Dosage: 20 TO 60 AND BACK TO 20
     Route: 048
     Dates: start: 20100509, end: 20111105
  2. CITALOPRAM HYDROBROMIDE [Suspect]
     Indication: DEPRESSION
     Dosage: 20 TO 60 AND BACK TO 20
     Route: 048
     Dates: start: 20100509, end: 20111105

REACTIONS (10)
  - AGITATION [None]
  - ERECTILE DYSFUNCTION [None]
  - BRUXISM [None]
  - DYSPNOEA [None]
  - LOSS OF LIBIDO [None]
  - MOOD SWINGS [None]
  - HEART RATE IRREGULAR [None]
  - SUICIDAL IDEATION [None]
  - DISTURBANCE IN ATTENTION [None]
  - PARANOIA [None]
